FAERS Safety Report 7365210-2 (Version None)
Quarter: 2011Q1

REPORT INFORMATION
  Report Type: 
  Country: None (occurrence: None)
  Receive Date: 20110321
  Receipt Date: 20101214
  Transmission Date: 20110831
  Serious: Yes (Disabling)
  Sender: FDA-Public Use
  Company Number: BE-BAYER-201038153GPV

PATIENT
  Sex: Male

DRUGS (2)
  1. MOXIFLOXACIN HCL [Suspect]
     Indication: RESPIRATORY TRACT INFECTION
     Dosage: 400 MG, QD
     Route: 048
     Dates: start: 20100601
  2. UNCODEABLE ^UNCLASSIFIABLE^ [Concomitant]
     Dosage: CHRONIC

REACTIONS (12)
  - INSOMNIA [None]
  - ARTHRALGIA [None]
  - TENDON PAIN [None]
  - FEELING COLD [None]
  - FEELING ABNORMAL [None]
  - MUSCULAR WEAKNESS [None]
  - ANXIETY [None]
  - MYALGIA [None]
  - CHONDROPATHY [None]
  - MUSCLE CONTRACTIONS INVOLUNTARY [None]
  - TREMOR [None]
  - PANIC ATTACK [None]
